FAERS Safety Report 15295292 (Version 1)
Quarter: 2018Q3

REPORT INFORMATION
  Report Type: Spontaneous
  Country: US (occurrence: US)
  Receive Date: 20180820
  Receipt Date: 20180820
  Transmission Date: 20181010
  Serious: Yes (Other)
  Sender: FDA-Public Use
  Company Number: US-COLGATE PALMOLIVE COMPANY-20180801888

PATIENT

DRUGS (1)
  1. COLGATE TOTAL ADVANCE WHITENING [Suspect]
     Active Substance: SODIUM FLUORIDE\TRICLOSAN
     Indication: DENTAL DISORDER PROPHYLAXIS
     Dosage: UNKNOWN DOSE
     Route: 048
     Dates: start: 1978, end: 201807

REACTIONS (3)
  - Type 2 diabetes mellitus [Unknown]
  - Accidental exposure to product [Unknown]
  - Retching [Unknown]

NARRATIVE: CASE EVENT DATE: 1997
